FAERS Safety Report 5688174-6 (Version None)
Quarter: 2008Q1

REPORT INFORMATION
  Report Type: 
  Country: None (occurrence: None)
  Receive Date: 20080327
  Receipt Date: 20080314
  Transmission Date: 20080703
  Serious: Yes (Other)
  Sender: FDA-Public Use
  Company Number: GXKR2008BR02685

PATIENT
  Age: 13 Year
  Sex: Male

DRUGS (2)
  1. DICLOFENAC (NGX)(DICLOFENAC) UNKNOWN [Suspect]
     Indication: DENTAL TREATMENT
     Dosage: 50 MG; 50 MG, ONCE/SINGLE
     Dates: end: 20050101
  2. ANAESTHETICS, LOCAL (NO INGREDIENTS/SUBSTANCES) [Concomitant]

REACTIONS (2)
  - GRAND MAL CONVULSION [None]
  - SYNCOPE [None]
